FAERS Safety Report 9412462 (Version 1)
Quarter: 2013Q2

REPORT INFORMATION
  Report Type: Spontaneous
  Country: US (occurrence: None)
  Receive Date: 20130403
  Receipt Date: 20130403
  Transmission Date: 20140414
  Serious: Yes (Disabling, Other)
  Sender: FDA-Public Use
  Company Number: AUR-APL-2009-00307

PATIENT
  Age: 31 Year
  Sex: Female
  Weight: 57 kg

DRUGS (6)
  1. FLUOXETINE (FLUOXETINE) (FLUOXETINE) [Suspect]
     Indication: DEPRESSION
     Route: 048
     Dates: start: 20090516, end: 20120619
  2. MIRTAZAPINE (MIRTAZAPINE) [Suspect]
     Indication: DEPRESSION
     Route: 048
     Dates: start: 20090515, end: 20090619
  3. DIAZEPAM (DIAZEPAM) [Concomitant]
  4. NAPROXEN (NAPROXEN) [Concomitant]
  5. OMEPRAZOLE (OMEPRAZOLE) [Suspect]
  6. NITRAZEPAM [Concomitant]

REACTIONS (2)
  - Oedema peripheral [None]
  - Gait disturbance [None]
